FAERS Safety Report 8651700 (Version 3)
Quarter: 2012Q4

REPORT INFORMATION
  Report Type: 
  Country: GB (occurrence: GB)
  Receive Date: 20120706
  Receipt Date: 20121227
  Transmission Date: 20130627
  Serious: Yes (Hospitalization, Other)
  Sender: FDA-Public Use
  Company Number: PHFR2012GB001199

PATIENT
  Age: 32 Year
  Sex: Male
  Weight: 76.9 kg

DRUGS (5)
  1. CLOZARIL [Suspect]
     Indication: SCHIZOPHRENIA
     Dosage: 300 mg, daily
     Route: 048
     Dates: start: 20111231
  2. CLOZARIL [Suspect]
     Dosage: 200 mg, daily
     Route: 048
  3. CLOZARIL [Suspect]
     Dosage: 225 mg, UNK
     Route: 048
     Dates: end: 20120702
  4. LACTULOSE [Concomitant]
     Indication: CONSTIPATION
     Dosage: 10 ml,
     Route: 048
     Dates: start: 201201
  5. SENNA [Concomitant]
     Indication: CONSTIPATION
     Dosage: 2 DF,
     Route: 048
     Dates: start: 201201

REACTIONS (18)
  - Fall [Recovered/Resolved]
  - Lethargy [Recovered/Resolved]
  - Convulsion [Recovered/Resolved]
  - Myoclonus [Recovered/Resolved]
  - Hypotonia [Unknown]
  - Tachycardia [Unknown]
  - Sinus tachycardia [Unknown]
  - Dyskinesia [Unknown]
  - Muscular weakness [Unknown]
  - Increased appetite [Recovered/Resolved]
  - Weight increased [Unknown]
  - Sedation [Unknown]
  - Fatigue [Recovered/Resolved]
  - Constipation [Recovered/Resolved]
  - Antipsychotic drug level below therapeutic [Unknown]
  - White blood cell count increased [Unknown]
  - Somnolence [Recovered/Resolved]
  - Neutrophil count increased [Unknown]
